FAERS Safety Report 21181199 (Version 1)
Quarter: 2022Q3

REPORT INFORMATION
  Report Type: Spontaneous
  Country: US (occurrence: US)
  Receive Date: 20220806
  Receipt Date: 20220806
  Transmission Date: 20221027
  Serious: Yes (Hospitalization)
  Sender: FDA-Public Use
  Company Number: US-Accord-271748

PATIENT
  Age: 16 Year
  Sex: Male
  Weight: 88.70 kg

DRUGS (8)
  1. ETOPOSIDE [Suspect]
     Active Substance: ETOPOSIDE
     Indication: Osteosarcoma metastatic
     Dosage: 196 MG, CYCLICAL
     Route: 042
     Dates: start: 20210318, end: 20210604
  2. IFOSFAMIDE [Suspect]
     Active Substance: IFOSFAMIDE
     Indication: Osteosarcoma metastatic
     Dosage: 5880 MG, CYCLICAL
     Route: 042
     Dates: start: 20210319, end: 20210604
  3. MESNA [Suspect]
     Active Substance: MESNA
     Indication: Product used for unknown indication
     Route: 042
     Dates: start: 20210319, end: 20210319
  4. NEULASTA [Concomitant]
     Active Substance: PEGFILGRASTIM
     Indication: White blood cell count decreased
     Route: 058
     Dates: start: 20210323, end: 20210323
  5. ETOPOSIDE [Suspect]
     Active Substance: ETOPOSIDE
     Indication: Osteosarcoma metastatic
     Dosage: 156.8 MG,CYCLICAL
     Route: 042
     Dates: start: 20210721, end: 20210723
  6. IFOSFAMIDE [Suspect]
     Active Substance: IFOSFAMIDE
     Indication: Osteosarcoma metastatic
     Dosage: 4704 MG, CYCLICAL
     Route: 042
     Dates: start: 20210721, end: 20210723
  7. MESNA [Suspect]
     Active Substance: MESNA
     Indication: Product used for unknown indication
     Route: 042
     Dates: start: 20210508, end: 20210510
  8. MESNA [Suspect]
     Active Substance: MESNA
     Indication: Product used for unknown indication
     Route: 042
     Dates: start: 20210602

REACTIONS (5)
  - Wound infection staphylococcal [Recovered/Resolved]
  - Febrile neutropenia [Recovered/Resolved]
  - Sepsis [Recovered/Resolved]
  - Bacteraemia [Recovered/Resolved]
  - Off label use [Unknown]

NARRATIVE: CASE EVENT DATE: 20210327
